FAERS Safety Report 5046308-0 (Version None)
Quarter: 2006Q2

REPORT INFORMATION
  Report Type: 
  Country: None (occurrence: None)
  Receive Date: 20060601
  Receipt Date: 20060315
  Transmission Date: 20061013
  Serious: No
  Sender: FDA-Public Use
  Company Number: 2006PV010320

PATIENT
  Age: 61 Year
  Sex: Male
  Weight: 92.9874 kg

DRUGS (2)
  1. BYETTA [Suspect]
     Indication: DIABETES MELLITUS NON-INSULIN-DEPENDENT
     Dosage: SEE IMAGE
     Route: 058
     Dates: start: 20060213, end: 20060301
  2. GLIPIZIDE [Concomitant]

REACTIONS (2)
  - FEELING ABNORMAL [None]
  - NAUSEA [None]
